FAERS Safety Report 12920497 (Version 4)
Quarter: 2017Q1

REPORT INFORMATION
  Report Type: Report from Study
  Country: CN (occurrence: CN)
  Receive Date: 20161108
  Receipt Date: 20170317
  Transmission Date: 20170428
  Serious: Yes (Hospitalization)
  Sender: FDA-Public Use
  Company Number: PHHY2016CN152398

PATIENT
  Age: 45 Year
  Sex: Male
  Weight: 76 kg

DRUGS (9)
  1. DIOVAN [Concomitant]
     Active Substance: VALSARTAN
     Indication: RENAL HYPERTENSION
     Dosage: 80 MG, BID
     Route: 048
     Dates: start: 20161022, end: 20161104
  2. DIOVAN [Concomitant]
     Active Substance: VALSARTAN
     Dosage: 80 MG, BID
     Route: 048
     Dates: start: 20161110
  3. MYFORTIC [Suspect]
     Active Substance: MYCOPHENOLATE SODIUM
     Indication: RENAL TRANSPLANT
     Dosage: 1440 MG, QD
     Route: 048
     Dates: start: 20161022, end: 20161104
  4. ADALAT [Concomitant]
     Active Substance: NIFEDIPINE
     Dosage: 30 MG, QD
     Route: 048
     Dates: start: 20161104, end: 20161110
  5. DIOVAN [Concomitant]
     Active Substance: VALSARTAN
     Dosage: 80 MG, QD
     Route: 048
     Dates: start: 20161104, end: 20161110
  6. ADALAT [Concomitant]
     Active Substance: NIFEDIPINE
     Indication: RENAL HYPERTENSION
     Dosage: 30 MG, BID
     Route: 048
     Dates: start: 20161022, end: 20161104
  7. ADALAT [Concomitant]
     Active Substance: NIFEDIPINE
     Dosage: 30 MG, BID
     Route: 048
     Dates: start: 20161110
  8. MYFORTIC [Suspect]
     Active Substance: MYCOPHENOLATE SODIUM
     Indication: IMMUNOSUPPRESSANT DRUG THERAPY
     Dosage: 1080 MG, QD
     Route: 048
     Dates: start: 20161104
  9. URAPIDIL [Concomitant]
     Active Substance: URAPIDIL
     Indication: RENAL HYPERTENSION
     Dosage: PUMPING 250 MG, TEMPORARY ONCE
     Route: 065
     Dates: start: 20161022

REACTIONS (1)
  - Urinary anastomotic leak [Recovered/Resolved]

NARRATIVE: CASE EVENT DATE: 20161030
